FAERS Safety Report 13254201 (Version 1)
Quarter: 2017Q1

REPORT INFORMATION
  Report Type: Spontaneous
  Country: GB (occurrence: GB)
  Receive Date: 20170221
  Receipt Date: 20170221
  Transmission Date: 20170428
  Serious: Yes (Hospitalization)
  Sender: FDA-Public Use
  Company Number: GB-SUN PHARMACEUTICAL INDUSTRIES LTD-2017RR-133693

PATIENT
  Age: 95 Year
  Sex: Female
  Weight: 49 kg

DRUGS (6)
  1. PARACETAMOL [Concomitant]
     Active Substance: ACETAMINOPHEN
     Indication: PAIN
     Dosage: 4 TIMES/DAY.
     Route: 065
     Dates: start: 20160428
  2. ADCAL [Concomitant]
     Active Substance: CALCIUM CARBONATE
     Indication: PRODUCT USED FOR UNKNOWN INDICATION
     Dosage: 1 DF, BID
     Route: 065
     Dates: start: 20160512
  3. ZEROBASE [Concomitant]
     Indication: PRODUCT USED FOR UNKNOWN INDICATION
     Dosage: AS DIRECTED.
     Route: 065
     Dates: start: 20160224
  4. BACLOFEN. [Suspect]
     Active Substance: BACLOFEN
     Indication: DECUBITUS ULCER
     Dosage: 10 MG, TID, TAKEN 5 DOSES.
     Route: 065
     Dates: start: 20170124
  5. FORTISIP [Concomitant]
     Active Substance: CARBOHYDRATES\FATTY ACIDS\MINERALS\PROTEIN\VITAMINS
     Indication: PRODUCT USED FOR UNKNOWN INDICATION
     Dosage: 1 DF, QD
     Route: 065
     Dates: start: 20160224
  6. SUDOCREM [Concomitant]
     Dosage: AS DIRECTED.
     Dates: start: 20160224

REACTIONS (3)
  - Hypernatraemia [Recovered/Resolved]
  - Pneumonia [Unknown]
  - Somnolence [Unknown]

NARRATIVE: CASE EVENT DATE: 20170124
